FAERS Safety Report 9311267 (Version 3)
Quarter: 2013Q3

REPORT INFORMATION
  Report Type: Spontaneous
  Country: FI (occurrence: FI)
  Receive Date: 20130528
  Receipt Date: 20130905
  Transmission Date: 20140515
  Serious: Yes (Hospitalization)
  Sender: FDA-Public Use
  Company Number: FI-PFIZER INC-2013148662

PATIENT
  Age: 30 Year
  Sex: Female

DRUGS (2)
  1. CHAMPIX [Suspect]
     Indication: SMOKING CESSATION THERAPY
     Dosage: 0.5 MG, UNK
     Route: 048
     Dates: start: 20130501, end: 201305
  2. CHAMPIX [Suspect]
     Dosage: 1 MG, 2X/DAY
     Dates: start: 20130508, end: 20130508

REACTIONS (10)
  - Hallucination [Recovering/Resolving]
  - Paranoia [Recovering/Resolving]
  - Mania [Recovering/Resolving]
  - Confusional state [Recovering/Resolving]
  - Elevated mood [Recovering/Resolving]
  - Psychomotor hyperactivity [Recovering/Resolving]
  - Irritability [Recovering/Resolving]
  - Restlessness [Recovering/Resolving]
  - Hypophagia [Recovering/Resolving]
  - Insomnia [Recovering/Resolving]
